FAERS Safety Report 9349129 (Version 2)
Quarter: 2013Q2

REPORT INFORMATION
  Report Type: Spontaneous
  Country: PH (occurrence: PH)
  Receive Date: 20130614
  Receipt Date: 20130622
  Transmission Date: 20140414
  Serious: Yes (Death, Hospitalization, Other)
  Sender: FDA-Public Use
  Company Number: PH-009507513-1306PHL005275

PATIENT
  Age: 50 Year
  Sex: Male

DRUGS (3)
  1. PEG-INTRON REDIPEN [Suspect]
     Indication: HEPATITIS C
     Dosage: REDIPEN
     Dates: start: 20130607
  2. REBETOL [Suspect]
     Indication: HEPATITIS C
     Dosage: UNK
     Route: 048
     Dates: start: 20130607
  3. DEPAKOTE [Concomitant]

REACTIONS (6)
  - Multi-organ failure [Fatal]
  - Status epilepticus [Not Recovered/Not Resolved]
  - Pyrexia [Recovered/Resolved]
  - Hypoxia [Unknown]
  - Blood pressure decreased [Unknown]
  - Blood creatinine increased [Unknown]
